FAERS Safety Report 7554836-9 (Version None)
Quarter: 2011Q2

REPORT INFORMATION
  Report Type: 
  Country: None (occurrence: None)
  Receive Date: 20110617
  Receipt Date: 20110614
  Transmission Date: 20111010
  Serious: No
  Sender: FDA-Public Use
  Company Number: US-MERCK-1104USA02436

PATIENT
  Age: 52 Year
  Sex: Male
  Weight: 72 kg

DRUGS (5)
  1. POTASSIUM (UNSPECIFIED) [Concomitant]
     Route: 065
  2. ISENTRESS [Suspect]
     Route: 048
  3. ISENTRESS [Suspect]
     Indication: HIV INFECTION
     Route: 048
     Dates: start: 20110131, end: 20110417
  4. TRIZIVIR [Suspect]
     Indication: CD4 LYMPHOCYTES DECREASED
     Route: 065
     Dates: start: 20101220
  5. MAGNESIUM (UNSPECIFIED) [Concomitant]
     Route: 065

REACTIONS (1)
  - NEUROPATHY PERIPHERAL [None]
